FAERS Safety Report 7354385-7 (Version None)
Quarter: 2011Q1

REPORT INFORMATION
  Report Type: 
  Country: None (occurrence: None)
  Receive Date: 20110316
  Receipt Date: 20110301
  Transmission Date: 20110831
  Serious: Yes (Other)
  Sender: FDA-Public Use
  Company Number: PHHY2011CN16803

PATIENT
  Age: 65 Year
  Sex: Female

DRUGS (1)
  1. MIACALCIN [Suspect]
     Indication: PAIN IN EXTREMITY
     Dosage: 50 IU, Q48H
     Dates: start: 20101001, end: 20110101

REACTIONS (2)
  - ARTHRALGIA [None]
  - ENCHONDROMA [None]
